FAERS Safety Report 21082635 (Version 1)
Quarter: 2022Q3

REPORT INFORMATION
  Report Type: Spontaneous
  Country: CN (occurrence: CN)
  Receive Date: 20220714
  Receipt Date: 20220714
  Transmission Date: 20221027
  Serious: Yes (Other)
  Sender: FDA-Public Use
  Company Number: None

PATIENT
  Age: 31 Year
  Sex: Female
  Weight: 50 kg

DRUGS (9)
  1. CYCLOPHOSPHAMIDE [Suspect]
     Active Substance: CYCLOPHOSPHAMIDE
     Indication: Breast cancer female
     Dosage: UNK, QD, 1-2 CYCLE OF CHEMOTHERAPY, CYCLOPHOSPHAMIDE (ENDOXAN CTX) + NS
     Route: 042
  2. CYCLOPHOSPHAMIDE [Suspect]
     Active Substance: CYCLOPHOSPHAMIDE
     Dosage: 750 MG, QD, THIRD CYCLE OF CHEMOTHERAPY, CYCLOPHOSPHAMIDE (ENDOXAN CTX) (750 MG) + (NS 40 ML)
     Route: 042
     Dates: start: 20220526, end: 20220526
  3. SODIUM CHLORIDE [Suspect]
     Active Substance: SODIUM CHLORIDE
     Indication: Medication dilution
     Dosage: UNK, QD, 1-2 CYCLE OF CHEMOTHERAPY, CYCLOPHOSPHAMIDE (ENDOXAN CTX) + NS
     Route: 042
  4. SODIUM CHLORIDE [Suspect]
     Active Substance: SODIUM CHLORIDE
     Dosage: 40 ML, QD, THIRD CYCLE OF CHEMOTHERAPY, CYCLOPHOSPHAMIDE (ENDOXAN CTX) (750 MG) + (NS 40 ML)
     Route: 042
     Dates: start: 20220526, end: 20220526
  5. SODIUM CHLORIDE [Suspect]
     Active Substance: SODIUM CHLORIDE
     Dosage: UNK, QD, 1-2 CYCLE OF CHEMOTHERAPY,  EPIRUBICIN HYDROCHLORIDE (PHARMORUBICIN) + NS
     Route: 041
  6. SODIUM CHLORIDE [Suspect]
     Active Substance: SODIUM CHLORIDE
     Dosage: 100 ML, QD, THIRD CYCLE OF CHEMOTHERAPY, EPIRUBICIN HYDROCHLORIDE (PHARMORUBICIN) (108 MG) + NS (100
     Route: 041
     Dates: start: 20220526, end: 20220526
  7. EPIRUBICIN [Suspect]
     Active Substance: EPIRUBICIN
     Indication: Breast cancer female
     Dosage: UNK, QD, 1-2 CYCLE OF CHEMOTHERAPY, EPIRUBICIN HYDROCHLORIDE (PHARMORUBICIN) + NS
     Route: 041
  8. EPIRUBICIN [Suspect]
     Active Substance: EPIRUBICIN
     Dosage: 108 MG, QD, THIRD CYCLE OF CHEMOTHERAPY, EPIRUBICIN HYDROCHLORIDE (PHARMORUBICIN) (108 MG) + NS (100
     Route: 041
     Dates: start: 20220526, end: 20220526
  9. AI DUO [Concomitant]
     Indication: Product used for unknown indication
     Dosage: 6 MG, ON THE THIRD DAY
     Route: 058
     Dates: start: 20220528

REACTIONS (2)
  - White blood cell count decreased [Recovered/Resolved]
  - Agranulocytosis [Recovered/Resolved]

NARRATIVE: CASE EVENT DATE: 20220602
